FAERS Safety Report 14603727 (Version 3)
Quarter: 2018Q1

REPORT INFORMATION
  Report Type: Report from Study
  Country: US (occurrence: US)
  Receive Date: 20180306
  Receipt Date: 20180329
  Transmission Date: 20180509
  Serious: Yes (Other)
  Sender: FDA-Public Use
  Company Number: PHEH2018US007476

PATIENT
  Sex: Male

DRUGS (3)
  1. AFINITOR [Suspect]
     Active Substance: EVEROLIMUS
     Indication: PRODUCT USED FOR UNKNOWN INDICATION
     Dosage: 10 MG, QD
     Route: 065
  2. AMLODIPINE [Concomitant]
     Active Substance: AMLODIPINE BESYLATE
     Indication: PRODUCT USED FOR UNKNOWN INDICATION
     Dosage: 5 MG, UNK
     Route: 065
  3. KEPPRA [Concomitant]
     Active Substance: LEVETIRACETAM
     Indication: PRODUCT USED FOR UNKNOWN INDICATION
     Dosage: 50 MG, UNK
     Route: 065

REACTIONS (13)
  - Tongue abscess [Unknown]
  - Blister [Unknown]
  - Stevens-Johnson syndrome [Unknown]
  - Glossodynia [Unknown]
  - Dysphagia [Unknown]
  - Pruritus [Unknown]
  - Rash [Unknown]
  - Glossitis [Unknown]
  - Brain neoplasm [Unknown]
  - Acne [Unknown]
  - Oral mucosal blistering [Unknown]
  - Mucosal inflammation [Unknown]
  - Skin toxicity [Unknown]
